FAERS Safety Report 9418233 (Version 2)
Quarter: 2013Q4

REPORT INFORMATION
  Report Type: Spontaneous
  Country: JP (occurrence: JP)
  Receive Date: 20130724
  Receipt Date: 20131015
  Transmission Date: 20140711
  Serious: Yes (Hospitalization)
  Sender: FDA-Public Use
  Company Number: JP-PFIZER INC-2013210736

PATIENT
  Age: 61 Year
  Sex: Male

DRUGS (2)
  1. BENEFIX [Suspect]
     Dosage: 2000 IU 3 TIMES A WEEK
     Route: 042
     Dates: start: 20101210
  2. BENEFIX [Suspect]
     Dosage: 4000 IU, 2X/WEEK

REACTIONS (1)
  - Cerebral haemorrhage [Recovered/Resolved with Sequelae]
